FAERS Safety Report 13116586 (Version 1)
Quarter: 2017Q1

REPORT INFORMATION
  Report Type: Spontaneous
  Country: JP (occurrence: JP)
  Receive Date: 20170116
  Receipt Date: 20170116
  Transmission Date: 20170428
  Serious: Yes (Hospitalization)
  Sender: FDA-Public Use
  Company Number: JP-B.I. PHARMACEUTICALS,INC./RIDGEFIELD-2017-NB-000123

PATIENT
  Age: 6 Decade
  Sex: Male

DRUGS (3)
  1. MICATRIO CONBINATION [Suspect]
     Active Substance: AMLODIPINE\HYDROCHLOROTHIAZIDE\TELMISARTAN
     Indication: HYPERTENSION
     Route: 048
     Dates: start: 20161220
  2. MICAMLO COMBINATION [Suspect]
     Active Substance: AMLODIPINE BESYLATE\TELMISARTAN
     Indication: HYPERTENSION
     Route: 065
     Dates: end: 20161220
  3. MICAMLO COMBINATION [Suspect]
     Active Substance: AMLODIPINE BESYLATE\TELMISARTAN
     Indication: HYPERTENSION
     Route: 065

REACTIONS (4)
  - Medication error [Unknown]
  - Electrolyte imbalance [Recovered/Resolved]
  - Drug effect incomplete [Unknown]
  - Altered state of consciousness [Recovered/Resolved]
